FAERS Safety Report 17362748 (Version 1)
Quarter: 2020Q1

REPORT INFORMATION
  Report Type: Spontaneous
  Country: TW (occurrence: TW)
  Receive Date: 20200203
  Receipt Date: 20200203
  Transmission Date: 20200409
  Serious: Yes (Death, Other)
  Sender: FDA-Public Use
  Company Number: TW-PFIZER INC-2020032088

PATIENT
  Age: 65 Year
  Sex: Female

DRUGS (6)
  1. ZOPICLONE [Concomitant]
     Active Substance: ZOPICLONE
     Dosage: 7.5 MG, DAILY (HS)
     Route: 048
  2. LETROZOLE. [Concomitant]
     Active Substance: LETROZOLE
     Dosage: 2.5 MG, 1X/DAY (OD)
     Route: 048
  3. DIALICON [Concomitant]
     Dosage: 1 DF, 3X/DAY
     Route: 048
  4. SILYMARINE [Concomitant]
     Dosage: 1 DF, 3X/DAY
  5. ACETAMINOPHEN. [Concomitant]
     Active Substance: ACETAMINOPHEN
     Dosage: 500 MG, UNK
  6. IBRANCE [Suspect]
     Active Substance: PALBOCICLIB
     Dosage: 125 MG, CYCLIC (DAILY X 21 DAYS)

REACTIONS (10)
  - Aspartate aminotransferase increased [Unknown]
  - Diarrhoea [Recovering/Resolving]
  - Decreased appetite [Unknown]
  - Abdominal distension [Unknown]
  - Death [Fatal]
  - Haemoglobin decreased [Recovered/Resolved]
  - Neoplasm progression [Unknown]
  - Pruritus [Recovering/Resolving]
  - Taste disorder [Unknown]
  - White blood cell count decreased [Recovering/Resolving]

NARRATIVE: CASE EVENT DATE: 20190807
